FAERS Safety Report 6760382-2 (Version None)
Quarter: 2010Q2

REPORT INFORMATION
  Report Type: 
  Country: None (occurrence: None)
  Receive Date: 20100608
  Receipt Date: 20100602
  Transmission Date: 20101027
  Serious: Yes (Other)
  Sender: FDA-Public Use
  Company Number: JP-B.I. PHARMACEUTICALS,INC./RIDGEFIELD-2010-BP-03718NB

PATIENT
  Sex: Male

DRUGS (4)
  1. MICARDIS [Suspect]
     Indication: HYPERTENSION
     Dosage: 40 MG
     Route: 048
     Dates: start: 20080701
  2. CONTAC [Suspect]
     Indication: RHINITIS
     Route: 048
     Dates: start: 20100310, end: 20100322
  3. LIPITOR [Concomitant]
     Indication: HYPERLIPIDAEMIA
     Dosage: 10 MG
     Route: 048
     Dates: start: 20080701
  4. SALOBEL [Concomitant]
     Indication: HYPERURICAEMIA
     Route: 048
     Dates: start: 20080701

REACTIONS (2)
  - LOSS OF CONSCIOUSNESS [None]
  - RHINITIS [None]
